FAERS Safety Report 23450605 (Version 1)
Quarter: 2024Q1

REPORT INFORMATION
  Report Type: Spontaneous
  Country: DE (occurrence: DE)
  Receive Date: 20240129
  Receipt Date: 20240129
  Transmission Date: 20240409
  Serious: Yes (Death, Other)
  Sender: FDA-Public Use
  Company Number: DE-DSJP-DSE-2024-103876

PATIENT
  Age: 51 Year
  Sex: Male

DRUGS (2)
  1. TRASTUZUMAB DERUXTECAN [Suspect]
     Active Substance: TRASTUZUMAB DERUXTECAN
     Indication: Non-small cell lung cancer stage IIIB
     Dosage: UNK UNK, CYCLIC (3-CYCLES)
     Route: 065
     Dates: start: 202208, end: 202210
  2. TRASTUZUMAB DERUXTECAN [Suspect]
     Active Substance: TRASTUZUMAB DERUXTECAN
     Indication: Adenocarcinoma
     Dosage: UNK, CYCLIC (1 CYCLE IN REDUCED DOSAGE)
     Route: 065
     Dates: start: 202301

REACTIONS (5)
  - Death [Fatal]
  - Pneumonitis [Unknown]
  - Mucosal inflammation [Unknown]
  - Off label use [Recovered/Resolved]
  - Intentional product use issue [Recovered/Resolved]

NARRATIVE: CASE EVENT DATE: 20220801
